FAERS Safety Report 4745326-7 (Version None)
Quarter: 2005Q3

REPORT INFORMATION
  Report Type: 
  Country: None (occurrence: None)
  Receive Date: 20050812
  Receipt Date: 20050801
  Transmission Date: 20060218
  Serious: Yes (Other)
  Sender: FDA-Public Use
  Company Number: USA-2003-0005259

PATIENT
  Age: 51 Year
  Sex: Male
  Weight: 86.6 kg

DRUGS (19)
  1. OXYCONTIN [Suspect]
     Indication: PAIN
     Dosage: SEE IMAGE
     Dates: start: 19960101, end: 20020101
  2. OXYCONTIN [Suspect]
     Indication: PAIN
     Dosage: SEE IMAGE
     Dates: start: 20010119
  3. OXYCONTIN [Suspect]
     Indication: PAIN
     Dosage: SEE IMAGE
     Dates: start: 20020515
  4. OXYCONTIN [Suspect]
     Indication: PAIN
     Dosage: SEE IMAGE
     Dates: start: 20020613
  5. OXYCONTIN [Suspect]
     Indication: PAIN
     Dosage: SEE IMAGE
     Dates: start: 20020808
  6. OXYCODONE HCL [Suspect]
     Dosage: 5 MG Q8-12H, ORAL
     Route: 048
     Dates: start: 20000831
  7. CITALOPRAM (CITALOPRAM) [Concomitant]
  8. GLYBURIDE (GILBENCLAMIDE) [Concomitant]
  9. LISINOPRIL [Concomitant]
  10. ALPRAZOLAM [Concomitant]
  11. METFORMIN HCL [Concomitant]
  12. CELEXA [Concomitant]
  13. TERAZOSIN (TERAZOSIN) [Concomitant]
  14. CYCLOBENZAPRINE HCL [Concomitant]
  15. PIROXICAM [Concomitant]
  16. LORCET-HD [Concomitant]
  17. SOMA [Concomitant]
  18. INDOCID [Concomitant]
  19. TERAZOSIN [Concomitant]

REACTIONS (33)
  - AMNESIA [None]
  - ARTHRALGIA [None]
  - CELLULITIS [None]
  - DEPRESSION [None]
  - DISCOMFORT [None]
  - DRUG ABUSER [None]
  - DRUG DEPENDENCE [None]
  - DRUG WITHDRAWAL SYNDROME [None]
  - DYSPEPSIA [None]
  - DYSURIA [None]
  - ERECTILE DYSFUNCTION [None]
  - HOMICIDAL IDEATION [None]
  - HYPERHIDROSIS [None]
  - LIBIDO DECREASED [None]
  - LOSS OF CONSCIOUSNESS [None]
  - MUSCULOSKELETAL STIFFNESS [None]
  - MYALGIA [None]
  - NECK PAIN [None]
  - NERVOUSNESS [None]
  - OVERDOSE [None]
  - RASH [None]
  - RESPIRATORY FAILURE [None]
  - ROAD TRAFFIC ACCIDENT [None]
  - SINUSITIS [None]
  - STRESS [None]
  - SUICIDAL IDEATION [None]
  - TENSION [None]
  - THIRST [None]
  - TINNITUS [None]
  - URINARY RETENTION [None]
  - URINARY TRACT INFECTION [None]
  - URINE FLOW DECREASED [None]
  - WEIGHT DECREASED [None]
